FAERS Safety Report 6086312-7 (Version None)
Quarter: 2009Q1

REPORT INFORMATION
  Report Type: 
  Country: None (occurrence: None)
  Receive Date: 20090220
  Receipt Date: 20090219
  Transmission Date: 20090719
  Serious: Yes (Hospitalization)
  Sender: FDA-Public Use
  Company Number: US-ROXANE LABORATORIES, INC.-2009-RO-00175RO

PATIENT
  Sex: Female

DRUGS (11)
  1. PREDNISONE TAB [Suspect]
     Indication: RENAL TRANSPLANT
     Dates: start: 20050316
  2. BELATACEPT [Suspect]
     Indication: RENAL TRANSPLANT
     Route: 042
     Dates: start: 20050316
  3. CELLCEPT [Suspect]
     Indication: RENAL TRANSPLANT
     Dates: start: 20050316
  4. NORVASC [Concomitant]
     Dates: start: 20080601
  5. DILTIAZEM [Concomitant]
  6. MICARDIS [Concomitant]
     Dates: start: 20080101
  7. HECTORAL [Concomitant]
  8. MULTI-VITAMIN [Concomitant]
  9. ASCORBIC ACID [Concomitant]
  10. CRESTOR [Concomitant]
  11. CALCIUM + VITAMIN D [Concomitant]

REACTIONS (2)
  - DEHYDRATION [None]
  - PNEUMONIA [None]
